FAERS Safety Report 4654091-3 (Version None)
Quarter: 2005Q2

REPORT INFORMATION
  Report Type: 
  Country: None (occurrence: None)
  Receive Date: 20050404
  Receipt Date: 20041216
  Transmission Date: 20051028
  Serious: No
  Sender: FDA-Public Use
  Company Number: USA041286420

PATIENT
  Age: 71 Year
  Sex: Female

DRUGS (7)
  1. CYMBALTA [Suspect]
     Indication: NEUROPATHIC PAIN
     Dosage: 30 MG/2 DAY
  2. THYROID TAB [Concomitant]
  3. DIGOXIN [Concomitant]
  4. KLONOPIN [Concomitant]
  5. ASPIRIN [Concomitant]
  6. ATIVAN [Concomitant]
  7. ELAVIL [Concomitant]

REACTIONS (8)
  - BURNING SENSATION [None]
  - CHROMATOPSIA [None]
  - CONSTIPATION [None]
  - DIPLOPIA [None]
  - OEDEMA PERIPHERAL [None]
  - PAIN IN EXTREMITY [None]
  - URINARY TRACT INFECTION [None]
  - URINE ODOUR ABNORMAL [None]
